FAERS Safety Report 21519772 (Version 1)
Quarter: 2022Q4

REPORT INFORMATION
  Report Type: Other
  Country: AU (occurrence: None)
  Receive Date: 20221028
  Receipt Date: 20221028
  Transmission Date: 20230113
  Serious: Yes (Hospitalization, Other)
  Sender: FDA-Public Use
  Company Number: AU-Merck Healthcare KGaA-9359467

PATIENT
  Weight: 2.805 kg

DRUGS (2)
  1. METFORMIN HYDROCHLORIDE [Suspect]
     Active Substance: METFORMIN HYDROCHLORIDE
     Indication: Gestational diabetes
     Route: 064
  2. CLOZAPINE [Suspect]
     Active Substance: CLOZAPINE
     Indication: Schizophrenia
     Route: 064

REACTIONS (5)
  - Neonatal respiratory distress [Unknown]
  - Foetal monitoring abnormal [Unknown]
  - Premature baby [Recovered/Resolved]
  - Large for dates baby [Unknown]
  - Foetal exposure during pregnancy [Recovered/Resolved]
